FAERS Safety Report 18493259 (Version 1)
Quarter: 2020Q4

REPORT INFORMATION
  Report Type: Spontaneous
  Country: US (occurrence: US)
  Receive Date: 20201112
  Receipt Date: 20201112
  Transmission Date: 20210114
  Serious: Yes (Hospitalization, Other)
  Sender: FDA-Public Use
  Company Number: US-ABBVIE-20K-163-3640292-00

PATIENT
  Age: 77 Year
  Sex: Female
  Weight: 54 kg

DRUGS (12)
  1. GABAPENTIN. [Concomitant]
     Active Substance: GABAPENTIN
     Indication: PRODUCT USED FOR UNKNOWN INDICATION
  2. SYNTHROID [Suspect]
     Active Substance: LEVOTHYROXINE SODIUM
     Indication: PRODUCT USED FOR UNKNOWN INDICATION
     Route: 048
     Dates: end: 202009
  3. BIOTIN [Concomitant]
     Active Substance: BIOTIN
     Indication: VITAMIN SUPPLEMENTATION
  4. GOCOVRI [Suspect]
     Active Substance: AMANTADINE
     Dosage: EXTENDED RELEASE
     Route: 048
     Dates: start: 20200127, end: 2020
  5. VITAMIN B COMPLEX [Concomitant]
     Active Substance: CYANOCOBALAMIN\DEXPANTHENOL\NIACINAMIDE\PYRIDOXINE HYDROCHLORIDE\RIBOFLAVIN 5^-PHOSPHATE SODIUM\THIAMINE HYDROCHLORIDE\VITAMIN B COMPLEX
     Indication: VITAMIN SUPPLEMENTATION
  6. GOCOVRI [Suspect]
     Active Substance: AMANTADINE
     Indication: DYSKINESIA
     Dosage: EXTENDED RELEASE
     Route: 048
     Dates: start: 2020, end: 2020
  7. LEVOTHROID [Suspect]
     Active Substance: LEVOTHYROXINE SODIUM
     Indication: PRODUCT USED FOR UNKNOWN INDICATION
     Route: 065
     Dates: end: 202009
  8. CARBIDOPA AND LEVODOPA [Concomitant]
     Active Substance: CARBIDOPA\LEVODOPA
     Indication: PRODUCT USED FOR UNKNOWN INDICATION
     Dosage: 25/200
  9. GOCOVRI [Suspect]
     Active Substance: AMANTADINE
     Dosage: EXTENDED RELEASE?DOSE WAS INCREASED TO 137 MG ALONG WITH 68.5 MG 1X/DAY AT BEDTIME
     Route: 048
     Dates: start: 20201002, end: 20201009
  10. GOCOVRI [Suspect]
     Active Substance: AMANTADINE
     Dosage: AT BEDTIME
     Route: 048
     Dates: start: 20201010
  11. FISH OIL [Concomitant]
     Active Substance: FISH OIL
     Indication: NUTRITIONAL SUPPLEMENTATION
  12. PLAQUENIL [Concomitant]
     Active Substance: HYDROXYCHLOROQUINE SULFATE
     Indication: SUPPLEMENTATION THERAPY

REACTIONS (17)
  - Hip fracture [Recovering/Resolving]
  - Fall [Recovered/Resolved]
  - Muscle tightness [Recovering/Resolving]
  - Dyskinesia [Unknown]
  - Eye disorder [Recovering/Resolving]
  - Blepharospasm [Recovering/Resolving]
  - Weight decreased [Unknown]
  - Dystonia [Unknown]
  - Parkinson^s disease [Unknown]
  - Gastric bypass [Unknown]
  - Post procedural complication [Unknown]
  - Rheumatoid arthritis [Unknown]
  - Hypothyroidism [Unknown]
  - Femur fracture [Recovering/Resolving]
  - Breast cancer female [Unknown]
  - Transient ischaemic attack [Unknown]
  - Dizziness postural [Unknown]

NARRATIVE: CASE EVENT DATE: 2005
